FAERS Safety Report 9015317 (Version 1)
Quarter: 2013Q1

REPORT INFORMATION
  Report Type: Spontaneous
  Country: US (occurrence: None)
  Receive Date: 20130103
  Receipt Date: 20130103
  Transmission Date: 20140127
  Serious: Yes (Hospitalization, Other)
  Sender: FDA-Public Use
  Company Number: 2012SUN00381

PATIENT
  Age: 42 Year
  Sex: Female

DRUGS (2)
  1. LITHIUM CARBONATE [Suspect]
     Indication: MAJOR DEPRESSION
  2. VENLAFAXINE HYDROCHLORIDE [Suspect]
     Indication: MAJOR DEPRESSION

REACTIONS (4)
  - Drug interaction [None]
  - Serotonin syndrome [None]
  - Leukocytosis [None]
  - Blood creatine phosphokinase increased [None]
